FAERS Safety Report 24989664 (Version 1)
Quarter: 2025Q1

REPORT INFORMATION
  Report Type: Spontaneous
  Country: BR (occurrence: BR)
  Receive Date: 20250220
  Receipt Date: 20250220
  Transmission Date: 20250408
  Serious: Yes (Death, Hospitalization, Other)
  Sender: ACCORD
  Company Number: BR-Accord-470089

PATIENT
  Age: 64 Year
  Sex: Female

DRUGS (1)
  1. BENDAMUSTINE [Suspect]
     Active Substance: BENDAMUSTINE
     Indication: Waldenstrom^s macroglobulinaemia

REACTIONS (7)
  - Acute kidney injury [Fatal]
  - Peritonitis [Fatal]
  - Gastritis [Fatal]
  - Liver disorder [Fatal]
  - Oesophageal candidiasis [Fatal]
  - Escherichia sepsis [Fatal]
  - Off label use [Unknown]
